FAERS Safety Report 8079689-4 (Version None)
Quarter: 2012Q1

REPORT INFORMATION
  Report Type: 
  Country: None (occurrence: None)
  Receive Date: 20120128
  Receipt Date: 20110721
  Transmission Date: 20120608
  Serious: No
  Sender: FDA-Public Use
  Company Number: US-ABBOTT-11P-163-0840953-00

PATIENT
  Age: 58 Year
  Sex: Female

DRUGS (2)
  1. OMEPRZAOLE [Concomitant]
     Indication: PRODUCT USED FOR UNKNOWN INDICATION
  2. HUMIRA [Suspect]
     Indication: CROHN'S DISEASE
     Dates: start: 20100901

REACTIONS (3)
  - HYPERTENSION [None]
  - BLOOD COUNT ABNORMAL [None]
  - DYSURIA [None]
